FAERS Safety Report 12210708 (Version 2)
Quarter: 2016Q3

REPORT INFORMATION
  Report Type: Spontaneous
  Country: US (occurrence: US)
  Receive Date: 20160325
  Receipt Date: 20160929
  Transmission Date: 20161109
  Serious: Yes (Hospitalization)
  Sender: FDA-Public Use
  Company Number: US-BIOGEN-2016BI00209922

PATIENT
  Sex: Female

DRUGS (1)
  1. TECFIDERA [Suspect]
     Active Substance: DIMETHYL FUMARATE
     Indication: MULTIPLE SCLEROSIS
     Route: 048
     Dates: start: 20150422

REACTIONS (5)
  - Bradycardia [Unknown]
  - Hypertension [Unknown]
  - Muscle spasms [Recovered/Resolved]
  - Arterial disorder [Not Recovered/Not Resolved]
  - Atrioventricular block second degree [Unknown]
